FAERS Safety Report 6390255-9 (Version None)
Quarter: 2009Q4

REPORT INFORMATION
  Report Type: 
  Country: None (occurrence: None)
  Receive Date: 20091006
  Receipt Date: 20091001
  Transmission Date: 20100525
  Serious: Yes (Hospitalization)
  Sender: FDA-Public Use
  Company Number: B0596379A

PATIENT
  Age: 66 Year
  Sex: Female
  Weight: 90 kg

DRUGS (8)
  1. WELLBUTRIN [Suspect]
     Indication: DRUG USE FOR UNKNOWN INDICATION
     Dosage: 150MG PER DAY
     Route: 065
     Dates: start: 20090307, end: 20090326
  2. CIPRALEX [Concomitant]
     Indication: DRUG USE FOR UNKNOWN INDICATION
     Dosage: 20MG PER DAY
     Dates: start: 20090216
  3. TEGRETOL [Concomitant]
     Dosage: 400MG PER DAY
     Dates: start: 20090216
  4. EDRONAX [Concomitant]
     Dosage: 8MG PER DAY
     Dates: start: 20090217, end: 20090404
  5. TEMESTA [Concomitant]
     Dosage: 1.5MG PER DAY
     Dates: start: 20090323
  6. NORVASC [Concomitant]
     Dosage: 5MG PER DAY
     Dates: start: 20090320
  7. FOSICOMB [Concomitant]
     Dates: start: 20090216
  8. LOVENOX [Concomitant]
     Dosage: 20MG PER DAY
     Dates: start: 20090323, end: 20090408

REACTIONS (1)
  - BODY DYSMORPHIC DISORDER [None]
